FAERS Safety Report 4611152-2 (Version None)
Quarter: 2005Q1

REPORT INFORMATION
  Report Type: 
  Country: None (occurrence: None)
  Receive Date: 20050317
  Receipt Date: 20031103
  Transmission Date: 20050727
  Serious: Yes (Life-Threatening, Hospitalization)
  Sender: FDA-Public Use
  Company Number: PHHO2003NL14006

PATIENT
  Age: 57 Year
  Sex: Female
  Weight: 57 kg

DRUGS (1)
  1. NEORAL [Suspect]
     Indication: LIVER TRANSPLANT
     Dosage: NOT REPORTED
     Route: 048
     Dates: start: 20030908

REACTIONS (3)
  - CATHETER REMOVAL [None]
  - POST PROCEDURAL HAEMATOMA [None]
  - STRIDOR [None]
